FAERS Safety Report 9371946 (Version 1)
Quarter: 2013Q2

REPORT INFORMATION
  Report Type: Spontaneous
  Country: US (occurrence: US)
  Receive Date: 20130627
  Receipt Date: 20130627
  Transmission Date: 20140414
  Serious: No
  Sender: FDA-Public Use
  Company Number: US-MYLANLABS-2012S1010915

PATIENT
  Age: 36 Year
  Sex: Female

DRUGS (1)
  1. CLOZAPINE TABLETS [Suspect]
     Indication: MENTAL DISORDER
     Route: 048
     Dates: start: 201203, end: 201205

REACTIONS (3)
  - Neutrophil count increased [Not Recovered/Not Resolved]
  - White blood cell count increased [Not Recovered/Not Resolved]
  - Fatigue [Not Recovered/Not Resolved]
